FAERS Safety Report 6366158-2 (Version None)
Quarter: 2009Q3

REPORT INFORMATION
  Report Type: 
  Country: None (occurrence: None)
  Receive Date: 20090921
  Receipt Date: 20090914
  Transmission Date: 20100115
  Serious: Yes (Death)
  Sender: FDA-Public Use
  Company Number: IT-BIOGENIDEC-2009BI027121

PATIENT
  Age: 45 Year
  Sex: Male

DRUGS (3)
  1. AVONEX [Suspect]
     Indication: RELAPSING-REMITTING MULTIPLE SCLEROSIS
     Dates: start: 19980101, end: 20010917
  2. LIORESAL [Concomitant]
     Dates: start: 20010521, end: 20050207
  3. LIORESAL [Concomitant]
     Dates: start: 20050207, end: 20050101

REACTIONS (2)
  - GLIOBLASTOMA MULTIFORME [None]
  - MULTIPLE SCLEROSIS [None]
